FAERS Safety Report 18371825 (Version 4)
Quarter: 2021Q1

REPORT INFORMATION
  Report Type: Report from Study
  Country: NL (occurrence: NL)
  Receive Date: 20201012
  Receipt Date: 20210324
  Transmission Date: 20210419
  Serious: Yes (Other)
  Sender: FDA-Public Use
  Company Number: NL-JNJFOC-20200953455

PATIENT
  Age: 37 Year
  Sex: Male
  Weight: 85 kg

DRUGS (14)
  1. LOSARTAN. [Concomitant]
     Active Substance: LOSARTAN
  2. CETOMACROGOL [Concomitant]
     Active Substance: COSMETICS
  3. BUMETANIDE. [Concomitant]
     Active Substance: BUMETANIDE
  4. ACETYLSALICYLIC ACID [Concomitant]
     Active Substance: ASPIRIN
  5. PREDNISOLONE. [Concomitant]
     Active Substance: PREDNISOLONE
  6. BISACODYL. [Concomitant]
     Active Substance: BISACODYL
  7. LERCANIDIPINE HYDROCHLORIDE [Concomitant]
     Active Substance: LERCANIDIPINE HYDROCHLORIDE
  8. OMEPRAZOLE. [Concomitant]
     Active Substance: OMEPRAZOLE
  9. DAIVOBET [Concomitant]
     Active Substance: BETAMETHASONE DIPROPIONATE\CALCIPOTRIENE
  10. FERROUS FUMARATE [Concomitant]
     Active Substance: FERROUS FUMARATE
  11. LACTITOL [Concomitant]
     Active Substance: LACTITOL
  12. LANTHANUM CARBONATE. [Concomitant]
     Active Substance: LANTHANUM CARBONATE
  13. OXYCODONE [Concomitant]
     Active Substance: OXYCODONE
  14. USTEKINUMAB [Suspect]
     Active Substance: USTEKINUMAB
     Indication: PSORIASIS
     Route: 058
     Dates: start: 2015

REACTIONS (1)
  - Pericarditis [Recovered/Resolved]

NARRATIVE: CASE EVENT DATE: 20200921
